FAERS Safety Report 9586485 (Version 2)
Quarter: 2013Q4

REPORT INFORMATION
  Report Type: Report from Study
  Country: ZA (occurrence: ZA)
  Receive Date: 20131003
  Receipt Date: 20131003
  Transmission Date: 20140711
  Serious: Yes (Other)
  Sender: FDA-Public Use
  Company Number: PHHY2013ZA022833

PATIENT
  Age: 59 Year
  Sex: Female

DRUGS (3)
  1. GLIVEC [Suspect]
     Indication: CHRONIC MYELOID LEUKAEMIA
     Dosage: 400 MG
  2. DRUGS FOR TREATMENT OF TUBERCULOSIS [Interacting]
     Dosage: UNK UKN, UNK
  3. STEROID ANTIBACTERIALS [Concomitant]
     Dosage: UNK UKN, UNK

REACTIONS (6)
  - Tuberculosis [Recovered/Resolved]
  - Acute febrile neutrophilic dermatosis [Recovered/Resolved]
  - Feeling abnormal [Unknown]
  - Arthralgia [Unknown]
  - Rash generalised [Recovered/Resolved]
  - Hepatic enzyme abnormal [Recovered/Resolved]
